FAERS Safety Report 5730904-9 (Version None)
Quarter: 2008Q2

REPORT INFORMATION
  Report Type: 
  Country: None (occurrence: None)
  Receive Date: 20080507
  Receipt Date: 20080425
  Transmission Date: 20081010
  Serious: Yes (Other)
  Sender: FDA-Public Use
  Company Number: US-PFIZER INC-2008037251

PATIENT
  Sex: Female
  Weight: 68 kg

DRUGS (7)
  1. CHANTIX [Suspect]
     Indication: SMOKING CESSATION THERAPY
     Dates: start: 20080201, end: 20080417
  2. TEMAZEPAM [Concomitant]
  3. MIRAPEX [Concomitant]
  4. SPIRONOLACTONE [Concomitant]
  5. ANASTROZOLE [Concomitant]
  6. ACETYLSALICYLIC ACID SRT [Concomitant]
  7. ARICEPT [Concomitant]

REACTIONS (4)
  - DEPRESSION [None]
  - MOOD ALTERED [None]
  - NIGHTMARE [None]
  - SUICIDE ATTEMPT [None]
